FAERS Safety Report 23762914 (Version 1)
Quarter: 2024Q2

REPORT INFORMATION
  Report Type: Spontaneous
  Country: US (occurrence: None)
  Receive Date: 20240419
  Receipt Date: 20240419
  Transmission Date: 20240715
  Serious: Yes (Other)
  Sender: FDA-Public Use
  Company Number: None

PATIENT
  Age: 74 Year
  Sex: Male
  Weight: 105.3 kg

DRUGS (18)
  1. REVLIMID [Suspect]
     Active Substance: LENALIDOMIDE
     Indication: Myelodysplastic syndrome
     Dosage: 1 TOT - TOTAL DAILY ORL?
     Route: 048
     Dates: start: 20240202, end: 20240415
  2. Eliquis 2.5 mg tablet [Concomitant]
  3. METOPROLOL TARTRATE [Concomitant]
     Active Substance: METOPROLOL TARTRATE
  4. pantoprazole 40 mg tablet,delayed release [Concomitant]
  5. acetaminophen 325 mg capsule [Concomitant]
  6. AMIODARONE [Concomitant]
     Active Substance: AMIODARONE
  7. CARVEDILOL [Concomitant]
     Active Substance: CARVEDILOL
  8. donepezil 5 mg tablet [Concomitant]
  9. Dulcolax (bisacodyl) 10 mg rectal suppository [Concomitant]
  10. Fleet Enema 19 gram-7 gram/118 mL [Concomitant]
  11. insulin glargine (U-100) 100 unit/mL (3 mL) subcutaneous pen [Concomitant]
  12. ipratropium 0.5 mg-albuterol 3 mg (2.5 mg base)/3 mL nebulization soln [Concomitant]
  13. memantine 5 mg tablet [Concomitant]
  14. Milk of Magnesia 400 mg/5 mL oral suspension [Concomitant]
  15. thiamine HCl (vitamin B1) 100 mg tablet [Concomitant]
  16. omeprazole 20 mg capsule,delayed release [Concomitant]
  17. clopidogrel 75 mg tablet [Concomitant]
  18. fenofibrate 160 mg tablet [Concomitant]

REACTIONS (1)
  - Death [None]

NARRATIVE: CASE EVENT DATE: 20240415
